FAERS Safety Report 15893031 (Version 1)
Quarter: 2019Q1

REPORT INFORMATION
  Report Type: Report from Study
  Country: US (occurrence: US)
  Receive Date: 20190130
  Receipt Date: 20190130
  Transmission Date: 20190417
  Serious: No
  Sender: FDA-Public Use
  Company Number: US-EXELIXIS-CABO-18015328

PATIENT
  Age: 66 Year
  Sex: Female

DRUGS (2)
  1. CABOMETYX [Suspect]
     Active Substance: CABOZANTINIB S-MALATE
     Indication: RENAL CANCER
     Dosage: 60 MG, QHS
     Dates: start: 20180724, end: 20180803
  2. FLORA ESSENCE (HERBALS) [Suspect]
     Active Substance: HERBALS
     Indication: PRODUCT USED FOR UNKNOWN INDICATION
     Dosage: UNK

REACTIONS (9)
  - Decreased appetite [Unknown]
  - Pollakiuria [Unknown]
  - Lip swelling [Unknown]
  - Abdominal pain upper [Unknown]
  - Chest pain [Not Recovered/Not Resolved]
  - Flatulence [Recovered/Resolved]
  - Dysgeusia [Unknown]
  - Hypertension [Unknown]
  - Diarrhoea [Recovered/Resolved]

NARRATIVE: CASE EVENT DATE: 201808
